FAERS Safety Report 17924989 (Version 1)
Quarter: 2020Q2

REPORT INFORMATION
  Report Type: Spontaneous
  Country: AE (occurrence: AE)
  Receive Date: 20200622
  Receipt Date: 20200622
  Transmission Date: 20200714
  Serious: Yes (Hospitalization, Other)
  Sender: FDA-Public Use
  Company Number: AE-ASTRAZENECA-2020SE78102

PATIENT
  Age: 13092 Day
  Sex: Female

DRUGS (1)
  1. FASENRA [Suspect]
     Active Substance: BENRALIZUMAB
     Indication: ASTHMA
     Route: 058
     Dates: start: 20190401

REACTIONS (3)
  - Chest pain [Unknown]
  - COVID-19 [Recovered/Resolved with Sequelae]
  - Asthma [Unknown]

NARRATIVE: CASE EVENT DATE: 20200521
